FAERS Safety Report 15803781 (Version 2)
Quarter: 2019Q2

REPORT INFORMATION
  Report Type: Spontaneous
  Country: US (occurrence: US)
  Receive Date: 20190109
  Receipt Date: 20190410
  Transmission Date: 20190711
  Serious: Yes (Other)
  Sender: FDA-Public Use
  Company Number: US-GILEAD-2019-0383523

PATIENT
  Age: 57 Year
  Sex: Male
  Weight: 74 kg

DRUGS (1)
  1. YESCARTA [Suspect]
     Active Substance: AXICABTAGENE CILOLEUCEL
     Indication: DIFFUSE LARGE B-CELL LYMPHOMA
     Dosage: UNK UNK, ONCE
     Route: 042
     Dates: start: 20181227, end: 20181227

REACTIONS (4)
  - Cytokine release syndrome [Unknown]
  - Klebsiella bacteraemia [Recovered/Resolved]
  - BK virus infection [Not Recovered/Not Resolved]
  - Neurotoxicity [Unknown]

NARRATIVE: CASE EVENT DATE: 20181228
